FAERS Safety Report 25971420 (Version 4)
Quarter: 2025Q4

REPORT INFORMATION
  Report Type: Report from Study
  Country: EU (occurrence: EU)
  Receive Date: 20251028
  Receipt Date: 20251215
  Transmission Date: 20260117
  Serious: Yes (Other)
  Sender: ABBVIE
  Company Number: EU-ABBVIE-6519546

PATIENT
  Age: 79 Year
  Sex: Male

DRUGS (7)
  1. FOSCARBIDOPA\FOSLEVODOPA [Suspect]
     Active Substance: FOSCARBIDOPA\FOSLEVODOPA
     Indication: Product used for unknown indication
     Dosage: FLOW RATE HAD INCREASED TO 0.46 ML/H TODAY, THEN 0.01 ML/H EVERY WEEK, UP TO 0.48 ML/H?LAST ADMIN...
     Route: 058
     Dates: start: 20251022
  2. FOSCARBIDOPA\FOSLEVODOPA [Suspect]
     Active Substance: FOSCARBIDOPA\FOSLEVODOPA
     Dosage: FLOW RATE 1 (ML/H): 0.46 ML/H INSTEAD OF 0.45; DURATION (H): 8H TO 22H
     Route: 058
     Dates: start: 20250929, end: 20251022
  3. FOSCARBIDOPA\FOSLEVODOPA [Suspect]
     Active Substance: FOSCARBIDOPA\FOSLEVODOPA
     Dosage: FLOW RATE 1 (ML/H): 0.45ML/H /DURATION (H): FROM 7H TO 22H?FIRST ADMIN DATE: 2025
     Route: 058
     Dates: end: 20251106
  4. FOSCARBIDOPA\FOSLEVODOPA [Suspect]
     Active Substance: FOSCARBIDOPA\FOSLEVODOPA
     Dosage: LAST ADMIN DATE : SEP 2025
     Route: 058
     Dates: start: 20250923
  5. FOSCARBIDOPA\FOSLEVODOPA [Suspect]
     Active Substance: FOSCARBIDOPA\FOSLEVODOPA
     Dosage: FIRST ADMIN DATE : NOV 2025
     Route: 058
     Dates: end: 20251128
  6. BENSERAZIDE HYDROCHLORIDE\LEVODOPA [Concomitant]
     Active Substance: BENSERAZIDE HYDROCHLORIDE\LEVODOPA
     Indication: Product used for unknown indication
     Dosage: DISPERSIBLE
     Route: 048
  7. BENSERAZIDE HYDROCHLORIDE\LEVODOPA [Concomitant]
     Active Substance: BENSERAZIDE HYDROCHLORIDE\LEVODOPA
     Indication: Product used for unknown indication
     Dosage: REDUCE THE TABLET TO ? TABLET
     Route: 048

REACTIONS (17)
  - Gait disturbance [Unknown]
  - Apathy [Not Recovered/Not Resolved]
  - Musculoskeletal stiffness [Not Recovered/Not Resolved]
  - Micturition urgency [Not Recovered/Not Resolved]
  - General physical health deterioration [Unknown]
  - Tremor [Not Recovered/Not Resolved]
  - Bradykinesia [Not Recovered/Not Resolved]
  - Nocturia [Not Recovered/Not Resolved]
  - Rapid eye movement sleep behaviour disorder [Unknown]
  - Asthenia [Not Recovered/Not Resolved]
  - Mood swings [Unknown]
  - Dysarthria [Not Recovered/Not Resolved]
  - Micrographia [Unknown]
  - Toothache [Not Recovered/Not Resolved]
  - Prostatic operation [Unknown]
  - Dyskinesia [Not Recovered/Not Resolved]
  - Depressed mood [Not Recovered/Not Resolved]

NARRATIVE: CASE EVENT DATE: 20250101
